FAERS Safety Report 8446351-5 (Version None)
Quarter: 2012Q2

REPORT INFORMATION
  Report Type: 
  Country: None (occurrence: None)
  Receive Date: 20120618
  Receipt Date: 20120611
  Transmission Date: 20120825
  Serious: Yes (Death, Life-Threatening, Hospitalization)
  Sender: FDA-Public Use
  Company Number: DK-BAXTER-2012BAX008080

PATIENT
  Age: 57 Year
  Sex: Male
  Weight: 75 kg

DRUGS (7)
  1. SULFAMETHOXAZOLE AND TRIMETHOPRIM [Concomitant]
     Route: 065
     Dates: start: 20100824, end: 20101103
  2. RITUXIMAB [Suspect]
     Route: 040
     Dates: start: 20100824, end: 20101117
  3. FLUDARABINE PHOSPHATE [Suspect]
     Route: 042
     Dates: start: 20100825, end: 20101119
  4. ACYCLOVIR [Concomitant]
     Route: 065
     Dates: start: 20100907, end: 20100924
  5. ACYCLOVIR [Concomitant]
     Route: 065
     Dates: start: 20110102, end: 20110109
  6. CYCLOPHOSPHAMIDE [Suspect]
     Indication: CHRONIC LYMPHOCYTIC LEUKAEMIA
     Route: 042
     Dates: start: 20100825, end: 20101119
  7. ACYCLOVIR [Concomitant]
     Route: 065
     Dates: start: 20101014, end: 20110103

REACTIONS (3)
  - LEUKOENCEPHALOPATHY [None]
  - FEBRILE NEUTROPENIA [None]
  - INFECTION [None]
